FAERS Safety Report 13484361 (Version 3)
Quarter: 2017Q2

REPORT INFORMATION
  Report Type: Spontaneous
  Country: US (occurrence: US)
  Receive Date: 20170425
  Receipt Date: 20170628
  Transmission Date: 20170830
  Serious: Yes (Hospitalization, Other)
  Sender: FDA-Public Use
  Company Number: US-AMGEN-USASP2017061428

PATIENT
  Age: 52 Year
  Sex: Female
  Weight: 96.6 kg

DRUGS (1)
  1. PROLIA [Suspect]
     Active Substance: DENOSUMAB
     Indication: OSTEOPOROSIS POSTMENOPAUSAL
     Dosage: 60 MG, Q6MO
     Route: 058

REACTIONS (18)
  - Fatigue [Unknown]
  - Cough [Unknown]
  - Peripheral swelling [Unknown]
  - Fluid overload [Recovering/Resolving]
  - Arthropathy [Unknown]
  - Pain in extremity [Recovering/Resolving]
  - Pleural effusion [Recovering/Resolving]
  - Bacteraemia [Unknown]
  - Pyrexia [Unknown]
  - Musculoskeletal disorder [Unknown]
  - Arthralgia [Recovering/Resolving]
  - Upper respiratory tract infection [Unknown]
  - Oedema peripheral [Recovering/Resolving]
  - Joint swelling [Unknown]
  - Chills [Unknown]
  - Lung infection [Recovering/Resolving]
  - Back pain [Recovering/Resolving]
  - Night sweats [Unknown]

NARRATIVE: CASE EVENT DATE: 201703
